FAERS Safety Report 9629948 (Version 1)
Quarter: 2013Q4

REPORT INFORMATION
  Report Type: Spontaneous
  Country: DE (occurrence: DE)
  Receive Date: 20131017
  Receipt Date: 20131017
  Transmission Date: 20140711
  Serious: Yes (Congenital Anomaly, Other)
  Sender: FDA-Public Use
  Company Number: DE-TEVA-437655GER

PATIENT
  Age: 1 Day
  Sex: Female

DRUGS (2)
  1. FLUOXETIN [Suspect]
     Route: 064
  2. NIFEDIPIN [Concomitant]
     Route: 064

REACTIONS (4)
  - Pulmonary valve incompetence [Recovered/Resolved]
  - Premature baby [Recovered/Resolved]
  - Patent ductus arteriosus [Recovered/Resolved]
  - Atrial septal defect [Recovering/Resolving]
